FAERS Safety Report 11539852 (Version 1)
Quarter: 2015Q3

REPORT INFORMATION
  Report Type: Spontaneous
  Country: US (occurrence: None)
  Receive Date: 20150922
  Receipt Date: 20150922
  Transmission Date: 20151125
  Serious: Yes (Life-Threatening, Hospitalization)
  Sender: FDA-Public Use
  Company Number: None

PATIENT
  Age: 42 Year
  Sex: Female
  Weight: 104 kg

DRUGS (9)
  1. MONTELUKAST SODIUM. [Concomitant]
     Active Substance: MONTELUKAST SODIUM
  2. MUPIROCIN. [Concomitant]
     Active Substance: MUPIROCIN
  3. XOLAIR [Suspect]
     Active Substance: OMALIZUMAB
     Indication: MULTIPLE ALLERGIES
     Route: 058
     Dates: start: 20150917, end: 20150917
  4. ALBUTEROL. [Concomitant]
     Active Substance: ALBUTEROL
  5. LORATADINE. [Concomitant]
     Active Substance: LORATADINE
  6. PREDNISONE. [Concomitant]
     Active Substance: PREDNISONE
  7. XOLAIR [Suspect]
     Active Substance: OMALIZUMAB
     Indication: ASTHMA
     Route: 058
     Dates: start: 20150917, end: 20150917
  8. BUDESONIDE. [Concomitant]
     Active Substance: BUDESONIDE
  9. ERGOCALCIFEROL. [Concomitant]
     Active Substance: ERGOCALCIFEROL

REACTIONS (6)
  - Urticaria [None]
  - Immediate post-injection reaction [None]
  - Dyspnoea [None]
  - Dizziness [None]
  - Feeling abnormal [None]
  - Throat tightness [None]

NARRATIVE: CASE EVENT DATE: 20150917
